FAERS Safety Report 23712137 (Version 4)
Quarter: 2024Q2

REPORT INFORMATION
  Report Type: Spontaneous
  Country: AR (occurrence: AR)
  Receive Date: 20240405
  Receipt Date: 20240523
  Transmission Date: 20240716
  Serious: No
  Sender: FDA-Public Use
  Company Number: AR-PFIZER INC-PV202400041932

PATIENT
  Age: 6 Year
  Sex: Male

DRUGS (1)
  1. GENOTROPIN [Suspect]
     Active Substance: SOMATROPIN
     Indication: Foetal growth restriction
     Dosage: 0.8 MG, 7 TIMES PER WEEK
     Dates: start: 20240313

REACTIONS (3)
  - Wrong technique in device usage process [Unknown]
  - Product leakage [Unknown]
  - Drug dose omission by device [Unknown]
